FAERS Safety Report 19068786 (Version 1)
Quarter: 2021Q1

REPORT INFORMATION
  Report Type: Spontaneous
  Country: US (occurrence: US)
  Receive Date: 20210328
  Receipt Date: 20210328
  Transmission Date: 20210420
  Serious: No
  Sender: FDA-Public Use
  Company Number: None

PATIENT
  Age: 35 Year
  Sex: Male

DRUGS (1)
  1. HUMIRA [Suspect]
     Active Substance: ADALIMUMAB
     Indication: INFLAMMATION
     Dosage: OTHER DOSE:40/0.4 MG/ML;?
     Route: 058
     Dates: start: 20201224

REACTIONS (3)
  - Gingival recession [None]
  - Hyperaesthesia teeth [None]
  - Dental caries [None]

NARRATIVE: CASE EVENT DATE: 20210323
